FAERS Safety Report 6398707-2 (Version None)
Quarter: 2009Q3

REPORT INFORMATION
  Report Type: 
  Country: None (occurrence: None)
  Receive Date: 20090921
  Receipt Date: 20090908
  Transmission Date: 20100115
  Serious: Yes (Death)
  Sender: FDA-Public Use
  Company Number: THYM-1001034

PATIENT
  Age: 33 Year
  Sex: Male
  Weight: 55 kg

DRUGS (8)
  1. THYMOGLOBULIN [Suspect]
     Indication: ACUTE GRAFT VERSUS HOST DISEASE
     Dosage: 2.5 MG/KG, INTRAVENOUS ; INTRAVENOUS
     Route: 042
     Dates: start: 20090420, end: 20090424
  2. TACROLIMUS [Concomitant]
  3. METHYLPREDNISOLONE [Concomitant]
  4. FLUCONAZOLE [Concomitant]
  5. MEROPENEM TRIHYDRATE (MEROPENEM TRIHYDRATE) [Concomitant]
  6. THROMBOMODULIN ALPHA (GENETICAL RECOMBINATION) [Concomitant]
  7. MYCOPHENOLATE MOFETIL [Concomitant]
  8. NAFAMOSTAT MESILATE (NAFAMOSTAT MESILATE) [Concomitant]

REACTIONS (3)
  - DISEASE PROGRESSION [None]
  - GRAFT VERSUS HOST DISEASE [None]
  - PYREXIA [None]
